FAERS Safety Report 9241937 (Version 2)
Quarter: 2013Q3

REPORT INFORMATION
  Report Type: Report from Study
  Country: US (occurrence: US)
  Receive Date: 20130419
  Receipt Date: 20130916
  Transmission Date: 20140515
  Serious: No
  Sender: FDA-Public Use
  Company Number: US-ACTELION-A-US2013-81917

PATIENT
  Age: 76 Year
  Sex: Male

DRUGS (2)
  1. TRACLEER [Suspect]
     Indication: PULMONARY ARTERIAL HYPERTENSION
     Dosage: 125 MG, BID
     Route: 048
     Dates: start: 2009
  2. REVATIO [Concomitant]
     Dosage: UNK, TID
     Route: 048

REACTIONS (4)
  - Photophobia [Recovered/Resolved]
  - Speech disorder [Recovered/Resolved]
  - Unresponsive to stimuli [Recovered/Resolved]
  - Local swelling [Recovering/Resolving]
